FAERS Safety Report 9031911 (Version 1)
Quarter: 2013Q1

REPORT INFORMATION
  Report Type: Spontaneous
  Country: FR (occurrence: FR)
  Receive Date: 20130125
  Receipt Date: 20130125
  Transmission Date: 20140127
  Serious: Yes (Other)
  Sender: FDA-Public Use
  Company Number: FR-BRISTOL-MYERS SQUIBB COMPANY-17316886

PATIENT
  Sex: Female

DRUGS (2)
  1. SUSTIVA [Suspect]
     Route: 064
  2. TRUVADA [Suspect]
     Route: 064

REACTIONS (4)
  - Gestational diabetes [Unknown]
  - Cholestasis [Unknown]
  - Pregnancy [Recovered/Resolved]
  - Live birth [Unknown]
